FAERS Safety Report 14814092 (Version 1)
Quarter: 2018Q2

REPORT INFORMATION
  Report Type: Spontaneous
  Country: KR (occurrence: KR)
  Receive Date: 20180426
  Receipt Date: 20180426
  Transmission Date: 20180711
  Serious: Yes (Life-Threatening, Other)
  Sender: FDA-Public Use
  Company Number: KR-ACCORD-066144

PATIENT
  Age: 49 Year
  Sex: Male

DRUGS (1)
  1. METHOTREXATE. [Suspect]
     Active Substance: METHOTREXATE
     Indication: CENTRAL NERVOUS SYSTEM LYMPHOMA
     Dosage: HIGH DOSE
     Route: 042

REACTIONS (4)
  - Urticaria [Recovering/Resolving]
  - Throat tightness [Recovering/Resolving]
  - Anaphylactic reaction [Recovering/Resolving]
  - Pruritus [Recovering/Resolving]
